FAERS Safety Report 4795402-8 (Version None)
Quarter: 2005Q4

REPORT INFORMATION
  Report Type: 
  Country: None (occurrence: None)
  Receive Date: 20051007
  Receipt Date: 20050929
  Transmission Date: 20060501
  Serious: Yes (Hospitalization)
  Sender: FDA-Public Use
  Company Number: 200510392BYL

PATIENT
  Age: 78 Year
  Sex: Male
  Weight: 56 kg

DRUGS (6)
  1. ASPIRIN [Suspect]
     Indication: CEREBRAL INFARCTION
     Dosage: 200 MG, QD, ORAL; 100 MG, QD, ORAL
     Route: 048
     Dates: start: 20050704, end: 20050711
  2. ASPIRIN [Suspect]
     Indication: CEREBRAL INFARCTION
     Dosage: 200 MG, QD, ORAL; 100 MG, QD, ORAL
     Route: 048
     Dates: start: 20050712, end: 20050725
  3. GASTER D [Concomitant]
  4. LIPITOR [Concomitant]
  5. PANSPORIN [Concomitant]
  6. MEIACT [Concomitant]

REACTIONS (4)
  - CONDITION AGGRAVATED [None]
  - EOSINOPHIL COUNT INCREASED [None]
  - INFECTION [None]
  - RENAL IMPAIRMENT [None]
